FAERS Safety Report 11833863 (Version 1)
Quarter: 2015Q4

REPORT INFORMATION
  Report Type: Spontaneous
  Country: US (occurrence: US)
  Receive Date: 20151214
  Receipt Date: 20151214
  Transmission Date: 20160305
  Serious: Yes (Other)
  Sender: FDA-Public Use
  Company Number: US-BAYER-2015-484303

PATIENT
  Age: 88 Year
  Sex: Female
  Weight: 45.35 kg

DRUGS (1)
  1. BAYER WOMENS [Suspect]
     Active Substance: ASPIRIN\CALCIUM CARBONATE
     Dosage: 1 DF, ONCE
     Route: 048
     Dates: start: 20151203, end: 20151203

REACTIONS (3)
  - Choking [Recovered/Resolved]
  - Product use issue [None]
  - Foreign body [Recovered/Resolved]

NARRATIVE: CASE EVENT DATE: 20151203
